FAERS Safety Report 4397980-X (Version None)
Quarter: 2004Q3

REPORT INFORMATION
  Report Type: 
  Country: None (occurrence: None)
  Receive Date: 20040713
  Receipt Date: 20040629
  Transmission Date: 20050211
  Serious: Yes (Death, Life-Threatening)
  Sender: FDA-Public Use
  Company Number: 04H-028-0265590-00

PATIENT
  Age: 55 Year
  Sex: Female

DRUGS (4)
  1. HEPARIN LOCK-FLUSH [Suspect]
     Indication: INTRAVENOUS CATHETER MANAGEMENT
     Dosage: {100 U, ^ROUTINE FLUSHES^ OF ART. LINE, INTRA-ARTERIAL; DURING SURGERY
     Route: 013
  2. HEPARIN SODIUM [Suspect]
     Indication: DEEP VEIN THROMBOSIS
     Dosage: 5000 UNIT, BOLUS DOSE; POST -OP DAY 12
  3. HEPARIN SODIUM [Suspect]
     Indication: PULMONARY EMBOLISM
     Dosage: 5000 UNIT, BOLUS DOSE; POST -OP DAY 12
  4. WARFARIN SODIUM [Concomitant]

REACTIONS (10)
  - CARDIAC ARREST [None]
  - DEEP VEIN THROMBOSIS [None]
  - DRUG HYPERSENSITIVITY [None]
  - HAEMORRHAGE INTRACRANIAL [None]
  - HEPARIN-INDUCED THROMBOCYTOPENIA [None]
  - HYPERTENSION [None]
  - NERVOUS SYSTEM DISORDER [None]
  - POST PROCEDURAL COMPLICATION [None]
  - PULMONARY EMBOLISM [None]
  - SUBDURAL HAEMATOMA [None]
